FAERS Safety Report 8861921 (Version 1)
Quarter: 2012Q4

REPORT INFORMATION
  Report Type: Spontaneous
  Country: US (occurrence: None)
  Receive Date: 20121026
  Receipt Date: 20121026
  Transmission Date: 20130627
  Serious: Yes (Death)
  Sender: FDA-Public Use
  Company Number: None

PATIENT
  Age: 94 Year
  Sex: Male

DRUGS (1)
  1. AVASTIN [Suspect]
     Indication: WET MACULAR DEGENERATION
     Dosage: 1 every 6 weeks intraocular
     Dates: start: 20101110, end: 20120928

REACTIONS (1)
  - Death [None]
